FAERS Safety Report 18235772 (Version 2)
Quarter: 2020Q3

REPORT INFORMATION
  Report Type: Report from Study
  Country: EG (occurrence: EG)
  Receive Date: 20200905
  Receipt Date: 20200910
  Transmission Date: 20201103
  Serious: Yes (Other)
  Sender: FDA-Public Use
  Company Number: NVSC2020EG171897

PATIENT
  Sex: Male

DRUGS (6)
  1. CONCOR [Concomitant]
     Active Substance: BISOPROLOL FUMARATE
     Indication: PRODUCT USED FOR UNKNOWN INDICATION
     Dosage: 5 MG, QD
     Route: 065
  2. ENTRESTO [Suspect]
     Active Substance: SACUBITRIL\VALSARTAN
     Indication: CARDIAC FAILURE
     Dosage: 200 MG, BID (STARTED LATE 2018)
     Route: 048
     Dates: start: 2018
  3. TAREG [Suspect]
     Active Substance: VALSARTAN
     Dosage: 80 MG, QD (STOPPED LATE 2018)
     Route: 048
     Dates: start: 201707, end: 2018
  4. LIPITOR [Concomitant]
     Active Substance: ATORVASTATIN CALCIUM
     Indication: PRODUCT USED FOR UNKNOWN INDICATION
     Dosage: 80 MG, QD
     Route: 065
  5. ASAPRIN [Concomitant]
     Active Substance: ASPIRIN
     Indication: PRODUCT USED FOR UNKNOWN INDICATION
     Dosage: 100 UNK, QD
     Route: 065
  6. TAREG [Suspect]
     Active Substance: VALSARTAN
     Indication: CARDIAC FAILURE
     Dosage: 40 MG, QD
     Route: 048
     Dates: start: 2017

REACTIONS (9)
  - Arthralgia [Recovering/Resolving]
  - Visual impairment [Not Recovered/Not Resolved]
  - Cervicogenic headache [Recovered/Resolved]
  - Blood uric acid increased [Recovered/Resolved]
  - Malaise [Recovered/Resolved]
  - Pain in extremity [Recovering/Resolving]
  - Ejection fraction decreased [Recovering/Resolving]
  - Lipids increased [Recovered/Resolved]
  - Malaise [Not Recovered/Not Resolved]

NARRATIVE: CASE EVENT DATE: 2017
